FAERS Safety Report 17437558 (Version 3)
Quarter: 2020Q1

REPORT INFORMATION
  Report Type: Report from Study
  Country: MX (occurrence: MX)
  Receive Date: 20200219
  Receipt Date: 20200317
  Transmission Date: 20200409
  Serious: Yes (Death)
  Sender: FDA-Public Use
  Company Number: MX-PFIZER INC-2020066534

PATIENT
  Age: 72 Year
  Sex: Male
  Weight: 60 kg

DRUGS (5)
  1. FILGRASTIM [Concomitant]
     Active Substance: FILGRASTIM
     Dosage: 300 MG, DAILY
     Route: 058
     Dates: start: 20200103, end: 20200106
  2. AMPHOTERICIN B. [Concomitant]
     Active Substance: AMPHOTERICIN B
     Dosage: 60 MG, DAILY
     Route: 042
     Dates: start: 20200101, end: 20200106
  3. VORICONAZOL [Concomitant]
     Active Substance: VORICONAZOLE
     Dosage: 200 MG, DAILY
     Route: 042
     Dates: start: 20200102, end: 20200106
  4. GLASDEGIB [Suspect]
     Active Substance: GLASDEGIB
     Dosage: UNK
  5. MEROPENEM. [Concomitant]
     Active Substance: MEROPENEM
     Dosage: 1 G, 3X/DAY
     Route: 042
     Dates: start: 20200103, end: 20200106

REACTIONS (1)
  - Septic shock [Fatal]

NARRATIVE: CASE EVENT DATE: 20200106
